FAERS Safety Report 8561845 (Version 4)
Quarter: 2020Q3

REPORT INFORMATION
  Report Type: Report from Study
  Country: US (occurrence: US)
  Receive Date: 20120515
  Receipt Date: 20200930
  Transmission Date: 20201103
  Serious: Yes (Other)
  Sender: FDA-Public Use
  Company Number: US-SANOFI-AVENTIS-2012SA031591

PATIENT
  Sex: Male
  Weight: 113.3 kg

DRUGS (4)
  1. INSULIN GLARGINE [Suspect]
     Active Substance: INSULIN GLARGINE
     Indication: TYPE 2 DIABETES MELLITUS
     Dosage: 100 IU, QD
     Route: 058
     Dates: start: 2002
  2. INSULIN GLARGINE [Suspect]
     Active Substance: INSULIN GLARGINE
     Dosage: DOSE DECREASED, 70 IU, QD
     Route: 058
     Dates: start: 2009
  3. INSULIN GLULISINE [Suspect]
     Active Substance: INSULIN GLULISINE
     Indication: TYPE 2 DIABETES MELLITUS
     Dosage: UNK UNK, TID
     Route: 058
     Dates: start: 2009
  4. INSULIN GLULISINE [Suspect]
     Active Substance: INSULIN GLULISINE
     Indication: TYPE 2 DIABETES MELLITUS
     Dosage: UNK UNK, TID
     Route: 058
     Dates: start: 2009

REACTIONS (6)
  - Asthma [Not Recovered/Not Resolved]
  - Pancreatic disorder [Unknown]
  - Expired device used [Unknown]
  - Weight decreased [Unknown]
  - Type 1 diabetes mellitus [Unknown]
  - Diabetes mellitus inadequate control [Unknown]
